FAERS Safety Report 17312961 (Version 2)
Quarter: 2020Q1

REPORT INFORMATION
  Report Type: Report from Study
  Country: None (occurrence: DE)
  Receive Date: 20200124
  Receipt Date: 20200127
  Transmission Date: 20200409
  Serious: Yes (Hospitalization, Other)
  Sender: FDA-Public Use
  Company Number: DE-ABBVIE-20K-062-3221184-00

PATIENT
  Age: 76 Year
  Sex: Male
  Weight: 72.64 kg

DRUGS (3)
  1. ENBREL [Concomitant]
     Active Substance: ETANERCEPT
     Indication: PRODUCT USED FOR UNKNOWN INDICATION
     Dates: start: 201502
  2. DEKRISTOL [Concomitant]
     Active Substance: CHOLECALCIFEROL
     Indication: PRODUCT USED FOR UNKNOWN INDICATION
  3. HUMIRA [Suspect]
     Active Substance: ADALIMUMAB
     Indication: RHEUMATOID ARTHRITIS
     Route: 058
     Dates: start: 20150610, end: 201905

REACTIONS (43)
  - C-reactive protein increased [Unknown]
  - Blood alkaline phosphatase decreased [Unknown]
  - Respiratory tract infection [Unknown]
  - Systemic inflammatory response syndrome [Unknown]
  - Weight decreased [Unknown]
  - Pneumonia [Recovered/Resolved]
  - Fall [Unknown]
  - Dyspnoea [Unknown]
  - Red blood cell count decreased [Unknown]
  - Red blood cell sedimentation rate increased [Recovered/Resolved]
  - White blood cell count increased [Unknown]
  - Atrial fibrillation [Unknown]
  - Lumbar vertebral fracture [Unknown]
  - Chronic kidney disease [Unknown]
  - Spinal pain [Unknown]
  - Haemoglobin decreased [Unknown]
  - Eosinophil count decreased [Unknown]
  - Asthenia [Unknown]
  - Lymphocyte count decreased [Unknown]
  - Metastases to lung [Unknown]
  - Acute kidney injury [Unknown]
  - Benign prostatic hyperplasia [Unknown]
  - Lung infiltration [Unknown]
  - Rheumatoid factor increased [Unknown]
  - Anaemia megaloblastic [Unknown]
  - Haemoglobin increased [Unknown]
  - Haemorrhoids [Unknown]
  - Haemorrhage [Unknown]
  - Urinary retention [Unknown]
  - Arthralgia [Recovering/Resolving]
  - Red blood cell sedimentation rate increased [Unknown]
  - Glomerular filtration rate decreased [Unknown]
  - Anaemia vitamin B12 deficiency [Unknown]
  - Bronchitis chronic [Unknown]
  - Pneumonia [Recovered/Resolved]
  - Decreased appetite [Unknown]
  - Vitamin D deficiency [Unknown]
  - Fluid retention [Unknown]
  - Serum ferritin increased [Unknown]
  - Haematocrit decreased [Unknown]
  - Rectal haemorrhage [Unknown]
  - Pollakiuria [Unknown]
  - Neutrophil count [Unknown]

NARRATIVE: CASE EVENT DATE: 2019
